FAERS Safety Report 9174141 (Version 1)
Quarter: 2013Q1

REPORT INFORMATION
  Report Type: Spontaneous
  Country: US (occurrence: US)
  Receive Date: 20130320
  Receipt Date: 20130320
  Transmission Date: 20140127
  Serious: No
  Sender: FDA-Public Use
  Company Number: US-PFIZER INC-2013087241

PATIENT
  Age: 65 Year
  Sex: Female
  Weight: 68.03 kg

DRUGS (2)
  1. CLINDAMYCIN HCL [Suspect]
     Dosage: UNK
  2. LEVOTHYROXINE [Concomitant]
     Dosage: UNK

REACTIONS (1)
  - Pruritus [Unknown]
